FAERS Safety Report 10061181 (Version 2)
Quarter: 2014Q2

REPORT INFORMATION
  Report Type: Spontaneous
  Country: IT (occurrence: IT)
  Receive Date: 20140407
  Receipt Date: 20140415
  Transmission Date: 20141212
  Serious: Yes (Hospitalization)
  Sender: FDA-Public Use
  Company Number: IT-ROCHE-1376492

PATIENT
  Age: 14 Year
  Sex: Male

DRUGS (1)
  1. ROCEFIN [Suspect]
     Indication: UPPER RESPIRATORY TRACT INFECTION
     Route: 030
     Dates: start: 20140325, end: 20140327

REACTIONS (4)
  - Orthostatic hypotension [Recovering/Resolving]
  - Pallor [Unknown]
  - Presyncope [Recovering/Resolving]
  - Asthenia [Recovering/Resolving]
